FAERS Safety Report 9512402 (Version 1)
Quarter: 2013Q1

REPORT INFORMATION
  Report Type: Spontaneous
  Country: US (occurrence: None)
  Receive Date: 20130305
  Receipt Date: 20130305
  Transmission Date: 20140127
  Serious: Yes (Hospitalization)
  Sender: FDA-Public Use
  Company Number: 163-21880-12103136

PATIENT
  Age: 63 Year
  Sex: Male

DRUGS (1)
  1. REVLIMID (LENALIDOMIDE) (CAPSULES) [Suspect]
     Indication: PLASMA CELL MYELOMA
     Dosage: 15 MG, 21 IN 21 D, PO
     Dates: start: 201108

REACTIONS (8)
  - Fall [None]
  - Weight decreased [None]
  - Fatigue [None]
  - Chills [None]
  - Decreased appetite [None]
  - Nausea [None]
  - Somnolence [None]
  - Femur fracture [None]
